FAERS Safety Report 5519027-1 (Version None)
Quarter: 2007Q4

REPORT INFORMATION
  Report Type: 
  Country: None (occurrence: None)
  Receive Date: 20071116
  Receipt Date: 20071105
  Transmission Date: 20080405
  Serious: No
  Sender: FDA-Public Use
  Company Number: PHNR2007AU02019

PATIENT
  Age: 78 Year
  Sex: Male

DRUGS (5)
  1. ZOMETA [Suspect]
     Dosage: 4 MG, UNK
  2. ZOLADEX [Concomitant]
     Dosage: 10.8 MG, Q3MO
     Dates: start: 20050101
  3. OXYCONTIN [Concomitant]
  4. PANADOL [Concomitant]
  5. OXYNORM [Concomitant]

REACTIONS (1)
  - EXTRAVASATION [None]
